FAERS Safety Report 7973729-6 (Version None)
Quarter: 2011Q4

REPORT INFORMATION
  Report Type: 
  Country: None (occurrence: None)
  Receive Date: 20111213
  Receipt Date: 20111213
  Transmission Date: 20120403
  Serious: No
  Sender: FDA-Public Use
  Company Number: None

PATIENT
  Age: 30 Year
  Weight: 56.245 kg

DRUGS (2)
  1. PREVACID [Concomitant]
     Indication: HYPERCHLORHYDRIA
     Dosage: ~20MG
     Route: 048
     Dates: start: 20070210, end: 20090208
  2. NEXIUM [Suspect]
     Indication: HYPERCHLORHYDRIA
     Dosage: 40MG
     Route: 048
     Dates: start: 20070101, end: 20091220

REACTIONS (4)
  - FATIGUE [None]
  - PAIN IN EXTREMITY [None]
  - DYSGRAPHIA [None]
  - ACTIVITIES OF DAILY LIVING IMPAIRED [None]
